FAERS Safety Report 8379549-5 (Version None)
Quarter: 2012Q2

REPORT INFORMATION
  Report Type: 
  Country: None (occurrence: None)
  Receive Date: 20120523
  Receipt Date: 20120511
  Transmission Date: 20120825
  Serious: Yes (Other)
  Sender: FDA-Public Use
  Company Number: FR-NOVOPROD-351444

PATIENT
  Age: 6 Year
  Sex: Male

DRUGS (1)
  1. NORDITROPIN [Suspect]
     Indication: GROWTH RETARDATION
     Dosage: 0.5 MG, QD
     Route: 058
     Dates: start: 20090515

REACTIONS (1)
  - VITILIGO [None]
